FAERS Safety Report 5306660-5 (Version None)
Quarter: 2007Q2

REPORT INFORMATION
  Report Type: 
  Country: None (occurrence: None)
  Receive Date: 20070424
  Receipt Date: 20070412
  Transmission Date: 20071010
  Serious: Yes (Hospitalization)
  Sender: FDA-Public Use
  Company Number: IT-PFIZER INC-2007030033

PATIENT
  Sex: Female

DRUGS (1)
  1. CABASER [Suspect]
     Indication: PARKINSON'S DISEASE
     Route: 048
     Dates: start: 20040101, end: 20070331

REACTIONS (4)
  - DYSPNOEA [None]
  - MITRAL VALVE DISEASE [None]
  - PLEURAL EFFUSION [None]
  - PRODUCTIVE COUGH [None]
